FAERS Safety Report 26193914 (Version 1)
Quarter: 2025Q4

REPORT INFORMATION
  Report Type: Other
  Country: CN (occurrence: CN)
  Receive Date: 20251224
  Receipt Date: 20251224
  Transmission Date: 20260118
  Serious: Yes (Hospitalization)
  Sender: INCYTE
  Company Number: CN-002147023-NVSC2025CN194128

PATIENT
  Age: 63 Year
  Weight: 59 kg

DRUGS (1)
  1. RUXOLITINIB [Suspect]
     Active Substance: RUXOLITINIB
     Indication: Myelofibrosis
     Dosage: 10 MG, BID
     Route: 061

REACTIONS (13)
  - Eosinophil percentage decreased [Unknown]
  - Monocyte percentage increased [Unknown]
  - Lymphocyte percentage decreased [Unknown]
  - Haematocrit decreased [Unknown]
  - Eosinopenia [Unknown]
  - Lymphocyte count decreased [Unknown]
  - Plateletcrit decreased [Unknown]
  - Red cell distribution width increased [Unknown]
  - White blood cell count decreased [Unknown]
  - Red blood cell count decreased [Unknown]
  - Haemoglobin decreased [Unknown]
  - Platelet count decreased [Not Recovered/Not Resolved]
  - Neutrophil count decreased [Unknown]
